FAERS Safety Report 4476678-3 (Version None)
Quarter: 2004Q4

REPORT INFORMATION
  Report Type: 
  Country: None (occurrence: None)
  Receive Date: 20041015
  Receipt Date: 20041015
  Transmission Date: 20050328
  Serious: Yes (Life-Threatening, Hospitalization)
  Sender: FDA-Public Use
  Company Number: None

PATIENT
  Age: 48 Year
  Sex: Male
  Weight: 70 kg

DRUGS (2)
  1. ZANTAC [Suspect]
     Indication: GASTROOESOPHAGEAL REFLUX DISEASE
     Dosage: 25 MG ONE INTRAVENOU
     Route: 042
     Dates: start: 20031015, end: 20031015
  2. REGLAN [Suspect]
     Indication: ULCER
     Dosage: 10MG ONE INTRAVENOU
     Route: 042

REACTIONS (4)
  - COMA [None]
  - HYPOTENSION [None]
  - INFUSION RELATED REACTION [None]
  - SYNCOPE VASOVAGAL [None]
